FAERS Safety Report 20176604 (Version 1)
Quarter: 2021Q4

REPORT INFORMATION
  Report Type: Spontaneous
  Country: US (occurrence: None)
  Receive Date: 20211209
  Receipt Date: 20211209
  Transmission Date: 20220304
  Serious: No
  Sender: FDA-Public Use
  Company Number: None

PATIENT
  Age: 81 Year
  Sex: Male

DRUGS (1)
  1. IVERMECTIN [Suspect]
     Active Substance: IVERMECTIN
     Dosage: OTHER ROUTE : INJECTION;?
     Route: 050

REACTIONS (11)
  - Hypertension [None]
  - Confusional state [None]
  - Muscular weakness [None]
  - Nervous system disorder [None]
  - Dysarthria [None]
  - Tremor [None]
  - Self-medication [None]
  - Intentional product use issue [None]
  - Diarrhoea [None]
  - Atrial fibrillation [None]
  - Nervousness [None]
